FAERS Safety Report 25784044 (Version 3)
Quarter: 2025Q4

REPORT INFORMATION
  Report Type: Report from Study
  Country: US (occurrence: US)
  Receive Date: 20250910
  Receipt Date: 20251016
  Transmission Date: 20260118
  Serious: Yes (Other)
  Sender: ACADIA PHARMACEUTICALS
  Company Number: US-ACADIA PHARMACEUTICALS INC.-ACA-2025-PIM-009980

PATIENT
  Age: 88 Year
  Sex: Female

DRUGS (13)
  1. NUPLAZID [Suspect]
     Active Substance: PIMAVANSERIN TARTRATE
     Indication: Parkinson^s disease psychosis
     Dosage: 34 MILLIGRAM, QD
     Route: 048
     Dates: start: 20250814
  2. ALBUTEROL [Concomitant]
     Active Substance: ALBUTEROL
  3. ALPHAGAN P [Concomitant]
     Active Substance: BRIMONIDINE TARTRATE
  4. AMIODARONE [Concomitant]
     Active Substance: AMIODARONE
  5. BUDESONIDE [Concomitant]
     Active Substance: BUDESONIDE
  6. CARBIDOPA\LEVODOPA [Concomitant]
     Active Substance: CARBIDOPA\LEVODOPA
  7. ELIQUIS [Concomitant]
     Active Substance: APIXABAN
  8. FLOVENT [Concomitant]
     Active Substance: FLUTICASONE PROPIONATE
  9. LATANOPROST [Concomitant]
     Active Substance: LATANOPROST
  10. MELATONIN [Concomitant]
     Active Substance: MELATONIN
  11. PRAVASTATIN [Concomitant]
     Active Substance: PRAVASTATIN
  12. SERTRALINE [Concomitant]
     Active Substance: SERTRALINE HYDROCHLORIDE
  13. VITAMIN D NOS [Concomitant]
     Active Substance: CHOLECALCIFEROL\ERGOCALCIFEROL

REACTIONS (2)
  - Hallucination, visual [Unknown]
  - Blister [Not Recovered/Not Resolved]

NARRATIVE: CASE EVENT DATE: 20250925
